FAERS Safety Report 8320517-7 (Version None)
Quarter: 2012Q2

REPORT INFORMATION
  Report Type: 
  Country: None (occurrence: None)
  Receive Date: 20120427
  Receipt Date: 20120427
  Transmission Date: 20120825
  Serious: Yes (Hospitalization)
  Sender: FDA-Public Use
  Company Number: None

PATIENT
  Age: 64 Year
  Sex: Male
  Weight: 81.646 kg

DRUGS (1)
  1. AVODART [Suspect]
     Indication: PROSTATIC SPECIFIC ANTIGEN
     Dosage: 0.5 MG.
     Dates: start: 20110502, end: 20110915

REACTIONS (2)
  - GYNAECOMASTIA [None]
  - BREAST PAIN [None]
